APPROVED DRUG PRODUCT: MODAFINIL
Active Ingredient: MODAFINIL
Strength: 100MG
Dosage Form/Route: TABLET;ORAL
Application: A090543 | Product #001
Applicant: HIKMA PHARMACEUTICALS
Approved: Sep 26, 2012 | RLD: No | RS: No | Type: DISCN